FAERS Safety Report 18725594 (Version 1)
Quarter: 2021Q1

REPORT INFORMATION
  Report Type: Spontaneous
  Country: US (occurrence: US)
  Receive Date: 20210111
  Receipt Date: 20210111
  Transmission Date: 20210419
  Serious: Yes (Other)
  Sender: FDA-Public Use
  Company Number: US-MYLANLABS-2021M1000576

PATIENT
  Age: 44 Year
  Sex: Female

DRUGS (6)
  1. SEVELAMER [Suspect]
     Active Substance: SEVELAMER
     Indication: HYPERPHOSPHATAEMIA
     Dosage: UNK
     Route: 065
  2. PHYTONADIONE. [Suspect]
     Active Substance: PHYTONADIONE
     Indication: HYPERPHOSPHATAEMIA
     Route: 065
  3. ACETAZOLAMIDE. [Suspect]
     Active Substance: ACETAZOLAMIDE
     Indication: HYPERPHOSPHATAEMIA
     Route: 065
  4. CALCITONIN SALMON. [Suspect]
     Active Substance: CALCITONIN SALMON
     Indication: HYPERPHOSPHATAEMIA
     Route: 065
  5. TAS 120 [Concomitant]
     Active Substance: FUTIBATINIB
     Dosage: DOSE REDUCED
     Route: 065
  6. TAS 120 [Concomitant]
     Active Substance: FUTIBATINIB
     Indication: CHOLANGIOCARCINOMA
     Dosage: UNK
     Route: 065

REACTIONS (1)
  - Drug ineffective [Unknown]
